FAERS Safety Report 5042302-4 (Version None)
Quarter: 2006Q2

REPORT INFORMATION
  Report Type: 
  Country: None (occurrence: None)
  Receive Date: 20060601
  Receipt Date: 20060330
  Transmission Date: 20061013
  Serious: No
  Sender: FDA-Public Use
  Company Number: 2006PV011238

PATIENT
  Age: 52 Year
  Sex: Male
  Weight: 113.8529 kg

DRUGS (5)
  1. BYETTA [Suspect]
     Indication: DIABETES MELLITUS NON-INSULIN-DEPENDENT
     Dosage: 10 MCG; BID; SC; SEE IMAGE
     Route: 058
     Dates: start: 20060217, end: 20060302
  2. BYETTA [Suspect]
     Indication: DIABETES MELLITUS NON-INSULIN-DEPENDENT
     Dosage: 10 MCG; BID; SC; SEE IMAGE
     Route: 058
     Dates: start: 20060303
  3. AMARYL [Concomitant]
  4. GLUCOPHAGE [Concomitant]
  5. AVANDIA [Concomitant]

REACTIONS (3)
  - DECREASED APPETITE [None]
  - NAUSEA [None]
  - WEIGHT DECREASED [None]
